FAERS Safety Report 13181464 (Version 2)
Quarter: 2017Q1

REPORT INFORMATION
  Report Type: Spontaneous
  Country: JP (occurrence: JP)
  Receive Date: 20170202
  Receipt Date: 20170208
  Transmission Date: 20170428
  Serious: Yes (Other)
  Sender: FDA-Public Use
  Company Number: JP-JNJFOC-20170122015

PATIENT

DRUGS (7)
  1. ADRIAMYCIN [Suspect]
     Active Substance: DOXORUBICIN HYDROCHLORIDE
     Indication: SOFT TISSUE SARCOMA
     Dosage: ON DAY 1 AND 2
     Route: 042
  2. IFOSFAMIDE. [Suspect]
     Active Substance: IFOSFAMIDE
     Indication: SOFT TISSUE SARCOMA
     Dosage: 2G/M2/D ON DAYS 1?5
     Route: 042
  3. DEXAMETHASONE. [Suspect]
     Active Substance: DEXAMETHASONE
     Indication: PROPHYLAXIS OF NAUSEA AND VOMITING
     Dosage: 30 MINUTES BEFORE ADMINISTRATION OF THE ANTICANCER DRUGS ON DAYS 1 TO 5
     Route: 042
  4. MESNA. [Concomitant]
     Active Substance: MESNA
     Route: 065
  5. APREPITANT. [Suspect]
     Active Substance: APREPITANT
     Indication: PROPHYLAXIS OF NAUSEA AND VOMITING
     Dosage: 30 MINUTES BEFORE ADMINISTRATION OF THE ANTICANCER DRUGS ON DAYS 1 TO 5
     Route: 065
  6. GRANISETRON [Suspect]
     Active Substance: GRANISETRON
     Indication: PROPHYLAXIS OF NAUSEA AND VOMITING
     Dosage: 30 MINUTES BEFORE ADMINISTRATION OF THE ANTICANCER DRUGS ON DAYS 1 TO 5
     Route: 042
  7. ADRIAMYCIN [Suspect]
     Active Substance: DOXORUBICIN HYDROCHLORIDE
     Indication: SOFT TISSUE SARCOMA
     Dosage: ON DAY 1 AND 2
     Route: 042

REACTIONS (15)
  - Thrombocytopenia [Unknown]
  - Product use issue [Unknown]
  - Malaise [Unknown]
  - Vomiting [Unknown]
  - Leukopenia [Unknown]
  - Hyperglycaemia [Unknown]
  - Febrile neutropenia [Unknown]
  - Aspartate aminotransferase increased [Unknown]
  - Alanine aminotransferase increased [Unknown]
  - Infection [Unknown]
  - Nausea [Unknown]
  - Neutropenia [Unknown]
  - Decreased appetite [Unknown]
  - Anaemia [Unknown]
  - Off label use [Unknown]
